FAERS Safety Report 21477421 (Version 2)
Quarter: 2022Q4

REPORT INFORMATION
  Report Type: Other
  Country: CN (occurrence: CN)
  Receive Date: 20221019
  Receipt Date: 20221026
  Transmission Date: 20230113
  Serious: Yes (Death)
  Sender: FDA-Public Use
  Company Number: CN-BoehringerIngelheim-2022-BI-197449

PATIENT

DRUGS (2)
  1. ALTEPLASE [Suspect]
     Active Substance: ALTEPLASE
     Indication: Cerebral infarction
     Dosage: 10% OF THE TOTAL DOSAGE WAS INJECTED INTRAVENOUSLY WITHIN 1 MIN,
     Route: 042
  2. ALTEPLASE [Suspect]
     Active Substance: ALTEPLASE
     Dosage: AND THE REMAINING 90% WAS ADDED TO SODIUM CHLORIDE SOLUTION, 0.9% IN 100ML, AND DRIPPED INTRAVENOUSL
     Route: 042

REACTIONS (1)
  - Death [Fatal]
